FAERS Safety Report 11587699 (Version 1)
Quarter: 2015Q4

REPORT INFORMATION
  Report Type: Spontaneous
  Country: US (occurrence: US)
  Receive Date: 20151001
  Receipt Date: 20151001
  Transmission Date: 20160304
  Serious: No
  Sender: FDA-Public Use
  Company Number: US-GLAXOSMITHKLINE-US2015138501

PATIENT
  Age: 75 Year
  Sex: Female

DRUGS (17)
  1. CLONIDINE. [Concomitant]
     Active Substance: CLONIDINE
  2. LOSARTAN POTASSIUM. [Concomitant]
     Active Substance: LOSARTAN POTASSIUM
  3. METFORMIN [Concomitant]
     Active Substance: METFORMIN HYDROCHLORIDE
  4. VERAPAMIL [Concomitant]
     Active Substance: VERAPAMIL HYDROCHLORIDE
  5. DORZOLAMIDE + TIMOLOL [Concomitant]
  6. ADVAIR DISKUS [Suspect]
     Active Substance: FLUTICASONE PROPIONATE\SALMETEROL XINAFOATE
     Indication: ASTHMA
     Dosage: 1 PUFF(S), BID
     Route: 055
  7. CLARITIN [Concomitant]
     Active Substance: LORATADINE
  8. VITAMIN D [Concomitant]
     Active Substance: CHOLECALCIFEROL
  9. SYSTANE (HYPROMELLOSE 2910 (4000 MPA.S)) [Suspect]
     Active Substance: HYPROMELLOSE 2910 (4000 MPA.S)
     Dosage: UNK
  10. BIOTIN [Concomitant]
     Active Substance: BIOTIN
  11. COQ10 [Concomitant]
     Active Substance: UBIDECARENONE
  12. THIOCTIC ACID [Concomitant]
     Active Substance: THIOCTIC ACID
  13. ASPIRIN (BABY) [Concomitant]
     Active Substance: ASPIRIN
  14. FISH OIL [Concomitant]
     Active Substance: FISH OIL
  15. RESTASIS [Suspect]
     Active Substance: CYCLOSPORINE
  16. GLUCOSAMINE [Concomitant]
     Active Substance: GLUCOSAMINE
  17. HYDROCHLORTHIAZIDE [Concomitant]
     Active Substance: HYDROCHLOROTHIAZIDE

REACTIONS (3)
  - Burning sensation [Recovered/Resolved]
  - Throat irritation [Recovered/Resolved]
  - Exposure to contaminated device [Unknown]

NARRATIVE: CASE EVENT DATE: 20150926
